FAERS Safety Report 6153269-X (Version None)
Quarter: 2009Q2

REPORT INFORMATION
  Report Type: 
  Country: None (occurrence: None)
  Receive Date: 20090413
  Receipt Date: 20090406
  Transmission Date: 20091009
  Serious: Yes (Other)
  Sender: FDA-Public Use
  Company Number: US-AVENTIS-200911519US

PATIENT
  Sex: Female
  Weight: 77.56 kg

DRUGS (8)
  1. LANTUS [Suspect]
     Route: 058
     Dates: start: 20060101
  2. OPTICLIK (INSULIN INJECTION PEN) [Suspect]
     Dates: start: 20060101, end: 20090226
  3. OPTICLIK (INSULIN INJECTION PEN) [Suspect]
     Dates: start: 20090226
  4. ASPIRIN [Concomitant]
     Dosage: DOSE QUANTITY: 1
  5. CALAN [Concomitant]
     Dosage: DOSE QUANTITY: 1
  6. ZESTRIL [Concomitant]
     Dosage: DOSE QUANTITY: 1
  7. METFORMIN HCL [Concomitant]
     Dosage: DOSE QUANTITY: 2
  8. HYDROCHLOROTHIAZIDE [Concomitant]
     Dosage: DOSE QUANTITY: 1

REACTIONS (1)
  - EYE HAEMORRHAGE [None]
